FAERS Safety Report 6620468-X (Version None)
Quarter: 2010Q1

REPORT INFORMATION
  Report Type: 
  Country: None (occurrence: None)
  Receive Date: 20100309
  Receipt Date: 20100222
  Transmission Date: 20100710
  Serious: Yes (Hospitalization)
  Sender: FDA-Public Use
  Company Number: DE-BRISTOL-MYERS SQUIBB COMPANY-14589139

PATIENT
  Age: 58 Year
  Sex: Male
  Weight: 96 kg

DRUGS (2)
  1. CETUXIMAB [Suspect]
     Indication: NON-SMALL CELL LUNG CANCER
     Dosage: REG 2;557.5MG,D 1,8+15(21JAN09;28JAN09; REG 3;532.5MG,D (04FEB09) 18FEB09(TOTAL 532.5MG)6INF;
     Route: 042
     Dates: start: 20090114
  2. GEMCITABINE [Suspect]
     Indication: NON-SMALL CELL LUNG CANCER
     Dosage: RECENT INF:11FEB2009(TOTAL 2000MG). D'CT ON 25FEB09;ALSO TAKEN ON 21JAN09,04FEB09,11FEB09;
     Route: 042
     Dates: start: 20090111, end: 20090225

REACTIONS (2)
  - PNEUMONIA [None]
  - RESPIRATORY FAILURE [None]
